FAERS Safety Report 18333304 (Version 1)
Quarter: 2020Q4

REPORT INFORMATION
  Report Type: Spontaneous
  Country: DE (occurrence: DE)
  Receive Date: 20201001
  Receipt Date: 20201001
  Transmission Date: 20210113
  Serious: Yes (Hospitalization)
  Sender: FDA-Public Use
  Company Number: DE-TEVA-2020-DE-1832538

PATIENT
  Age: 37 Year
  Sex: Female

DRUGS (2)
  1. PANTOPRAZOL [Suspect]
     Active Substance: PANTOPRAZOLE SODIUM
     Dosage: 40 MILLIGRAM DAILY;  1-0-0-0
  2. SALBUTAMOL [Concomitant]
     Active Substance: ALBUTEROL
     Dosage: .1 MILLIGRAM DAILY; 1-0-0-0

REACTIONS (5)
  - Liver function test abnormal [Unknown]
  - Haematemesis [Unknown]
  - Paraesthesia [Unknown]
  - Vomiting [Unknown]
  - Weight decreased [Unknown]
